FAERS Safety Report 26148040 (Version 1)
Quarter: 2025Q4

REPORT INFORMATION
  Report Type: Spontaneous
  Country: EU (occurrence: EU)
  Receive Date: 20251212
  Receipt Date: 20251212
  Transmission Date: 20260119
  Serious: Yes (Other)
  Sender: BEIGENE
  Company Number: None

PATIENT
  Age: 61 Year
  Sex: Male
  Weight: 80 kg

DRUGS (3)
  1. BRUKINSA [Suspect]
     Active Substance: ZANUBRUTINIB
     Indication: Castleman^s disease
     Dosage: 160 MILLIGRAM, Q12H
     Dates: start: 20250213, end: 20251027
  2. RITUXIMAB [Concomitant]
     Active Substance: RITUXIMAB
     Indication: Castleman^s disease
     Dosage: 2731MG (375MG/M2) FOR CYCLE 1 ON 24-OCT-2024 AND CYCLE 8 FROM 30-JUN-2025 TO 25-AUG-2025.
     Dates: start: 20241024, end: 20250825
  3. DOPTELET [Concomitant]
     Active Substance: AVATROMBOPAG MALEATE
     Indication: Thrombocytopenia
     Dosage: 40 MILLIGRAM, QD
     Dates: start: 20250123

REACTIONS (2)
  - Aplasia pure red cell [Recovering/Resolving]
  - Off label use [Unknown]

NARRATIVE: CASE EVENT DATE: 20250213
